FAERS Safety Report 22535902 (Version 1)
Quarter: 2023Q2

REPORT INFORMATION
  Report Type: Spontaneous
  Country: US (occurrence: US)
  Receive Date: 20230608
  Receipt Date: 20230608
  Transmission Date: 20230721
  Serious: Yes (Hospitalization, Other)
  Sender: FDA-Public Use
  Company Number: US-Hikma Pharmaceuticals USA Inc.-US-H14001-23-01810

PATIENT
  Age: 48 Year
  Sex: Male
  Weight: 104.5 kg

DRUGS (22)
  1. CYCLOPHOSPHAMIDE [Suspect]
     Active Substance: CYCLOPHOSPHAMIDE
     Indication: Chemotherapy
     Dosage: UNKNOWN
     Route: 065
     Dates: start: 20220511, end: 20220513
  2. FLUDARABINE [Suspect]
     Active Substance: FLUDARABINE PHOSPHATE
     Indication: Chemotherapy
     Dosage: UNKNOWN
     Route: 065
     Dates: start: 20220511, end: 20220513
  3. ITACITINIB [Suspect]
     Active Substance: ITACITINIB
     Indication: Prophylaxis
     Dosage: UNKNOWN
     Route: 065
     Dates: start: 20220513, end: 20220608
  4. YESCARTA [Concomitant]
     Active Substance: AXICABTAGENE CILOLEUCEL
     Indication: Product used for unknown indication
     Dosage: UNKNOWN
     Route: 065
     Dates: start: 20230516, end: 20230516
  5. OMEPRAZOLE [Concomitant]
     Active Substance: OMEPRAZOLE
     Indication: Product used for unknown indication
     Dosage: UNKNOWN
     Route: 065
     Dates: start: 2010
  6. PROCHLORPERAZINE [Concomitant]
     Active Substance: PROCHLORPERAZINE
     Indication: Product used for unknown indication
     Dosage: UNKNOWN
     Route: 065
     Dates: start: 20220218
  7. CHOLECALCIFEROL [Concomitant]
     Active Substance: CHOLECALCIFEROL
     Indication: Product used for unknown indication
     Dosage: UNKNOWN
     Route: 065
     Dates: start: 20220221
  8. ONDANSETRON [Concomitant]
     Active Substance: ONDANSETRON
     Indication: Product used for unknown indication
     Dosage: UNKNOWN
     Route: 065
     Dates: start: 20220221
  9. ACYCLOVIR [Concomitant]
     Active Substance: ACYCLOVIR
     Indication: Product used for unknown indication
     Dosage: UNKNOWN
     Route: 065
     Dates: start: 20220331
  10. LORATADINE [Concomitant]
     Active Substance: LORATADINE
     Indication: Product used for unknown indication
     Dosage: UNKNOWN
     Route: 065
     Dates: start: 20220331
  11. ALBUTEROL [Concomitant]
     Active Substance: ALBUTEROL
     Indication: Product used for unknown indication
     Dosage: UNKNOWN
     Route: 065
     Dates: start: 2010
  12. ERGOCALCIFEROL [Concomitant]
     Active Substance: ERGOCALCIFEROL
     Indication: Product used for unknown indication
     Dosage: UNKNOWN
     Route: 065
     Dates: start: 20220516
  13. PANTOPRAZOLE [Concomitant]
     Active Substance: PANTOPRAZOLE
     Indication: Product used for unknown indication
     Dosage: UNKNOWN
     Route: 065
     Dates: start: 20220516
  14. ALLOPURINOL [Concomitant]
     Active Substance: ALLOPURINOL
     Indication: Product used for unknown indication
     Dosage: UNKNOWN
     Route: 065
     Dates: start: 20220516, end: 20220601
  15. FENTANYL [Concomitant]
     Active Substance: FENTANYL
     Indication: Product used for unknown indication
     Dosage: UNKNOWN
     Route: 065
     Dates: start: 20220511, end: 20220511
  16. MIDAZOLAM [Concomitant]
     Active Substance: MIDAZOLAM
     Indication: Product used for unknown indication
     Dosage: UNKNOWN
     Route: 065
     Dates: start: 20220511, end: 20220511
  17. PALONOSETRON [Concomitant]
     Active Substance: PALONOSETRON
     Indication: Product used for unknown indication
     Dosage: UNKNOWN
     Route: 065
     Dates: start: 20220511, end: 20220511
  18. PEGFILGRASTIM [Concomitant]
     Active Substance: PEGFILGRASTIM
     Indication: Product used for unknown indication
     Dosage: UNKNOWN
     Route: 065
     Dates: start: 20220513, end: 20220513
  19. FLUCONAZOLE [Concomitant]
     Active Substance: FLUCONAZOLE
     Indication: Product used for unknown indication
     Dosage: UNKNOWN
     Route: 065
     Dates: start: 20220517
  20. SULFAMETHOXAZOLE\TRIMETHOPRIM [Concomitant]
     Active Substance: SULFAMETHOXAZOLE\TRIMETHOPRIM
     Indication: Product used for unknown indication
     Dosage: UNKNOWN
     Route: 065
     Dates: start: 20220601
  21. SODIUM CHLORIDE [Concomitant]
     Active Substance: SODIUM CHLORIDE
     Indication: Product used for unknown indication
     Dosage: UNKNOWN
     Route: 065
     Dates: start: 20220530, end: 20220530
  22. FILGRASTIM SNDZ [Concomitant]
     Indication: Product used for unknown indication
     Dosage: UNKNOWN
     Route: 065
     Dates: start: 20220608

REACTIONS (4)
  - Febrile neutropenia [Recovering/Resolving]
  - Neutropenia [Unknown]
  - Leukopenia [Unknown]
  - Pyrexia [Unknown]

NARRATIVE: CASE EVENT DATE: 20220601
